FAERS Safety Report 20668419 (Version 2)
Quarter: 2022Q2

REPORT INFORMATION
  Report Type: Report from Study
  Country: CA (occurrence: CA)
  Receive Date: 20220404
  Receipt Date: 20220624
  Transmission Date: 20220720
  Serious: Yes (Death)
  Sender: FDA-Public Use
  Company Number: CA-HLS-202200715

PATIENT
  Age: 78 Year
  Sex: Female

DRUGS (1)
  1. CLOZARIL [Suspect]
     Active Substance: CLOZAPINE
     Route: 048
     Dates: start: 19980526, end: 20211019

REACTIONS (1)
  - Death [Fatal]

NARRATIVE: CASE EVENT DATE: 20211001
